FAERS Safety Report 9500786 (Version 2)
Quarter: 2013Q1

REPORT INFORMATION
  Report Type: Spontaneous
  Country: US (occurrence: None)
  Receive Date: 20130107
  Receipt Date: 20130107
  Transmission Date: 20140127
  Serious: No
  Sender: FDA-Public Use
  Company Number: PHHY2011US117389

PATIENT
  Age: 64 Year
  Sex: Male

DRUGS (7)
  1. GILENYA (FINGOLIMOD) CAPSULE [Suspect]
     Indication: MULTIPLE SCLEROSIS
     Route: 048
     Dates: start: 20110328, end: 20111116
  2. LISINOPRIL (LISINOPRIL) [Concomitant]
  3. SPIRONOLACTONE (SPIRONOLACTONE) [Concomitant]
  4. ATENOLOL (ATENOLOL) [Concomitant]
  5. TAMSULOSIN (TAMSULOSIN) [Concomitant]
  6. ASPIRIN (ACETYLSALICYLIC ACID) [Concomitant]
  7. SIMVASTATIN (SIMVASTATIN) [Concomitant]

REACTIONS (1)
  - Macular oedema [None]
